FAERS Safety Report 6106602-9 (Version None)
Quarter: 2009Q1

REPORT INFORMATION
  Report Type: 
  Country: None (occurrence: None)
  Receive Date: 20090302
  Receipt Date: 20090216
  Transmission Date: 20090719
  Serious: Yes (Hospitalization)
  Sender: FDA-Public Use
  Company Number: 004834

PATIENT
  Age: 76 Year
  Sex: Male
  Weight: 68 kg

DRUGS (2)
  1. PLETAL [Suspect]
     Indication: CEREBRAL INFARCTION
     Dosage: 100 MG, BID ORAL
     Route: 048
     Dates: start: 20050201, end: 20080926
  2. IBURONO (FENPRODIL TARTRATE) TABLET [Concomitant]

REACTIONS (4)
  - LYMPHOCYTE STIMULATION TEST POSITIVE [None]
  - MOUTH HAEMORRHAGE [None]
  - PETECHIAE [None]
  - PLATELET COUNT DECREASED [None]
